FAERS Safety Report 4998984-6 (Version None)
Quarter: 2006Q2

REPORT INFORMATION
  Report Type: 
  Country: None (occurrence: None)
  Receive Date: 20060510
  Receipt Date: 20050414
  Transmission Date: 20061013
  Serious: Yes (Hospitalization, Other)
  Sender: FDA-Public Use
  Company Number: US-MERCK-0504USA03026

PATIENT
  Age: 56 Year
  Sex: Female
  Weight: 76 kg

DRUGS (4)
  1. VIOXX [Suspect]
     Indication: SPINAL DISORDER
     Route: 048
     Dates: start: 20020401, end: 20040901
  2. [THERAPY UNSPECIFIED] [Concomitant]
     Route: 065
  3. ALLEGRA [Concomitant]
     Route: 065
  4. PROZAC [Concomitant]
     Route: 065

REACTIONS (4)
  - CEREBROVASCULAR ACCIDENT [None]
  - MYOCARDIAL INFARCTION [None]
  - RENAL FAILURE ACUTE [None]
  - SPINAL OPERATION [None]
